FAERS Safety Report 8563495 (Version 4)
Quarter: 2013Q4

REPORT INFORMATION
  Report Type: Spontaneous
  Country: US (occurrence: US)
  Receive Date: 20120509
  Receipt Date: 20131108
  Transmission Date: 20140711
  Serious: Yes (Other)
  Sender: FDA-Public Use
  Company Number: US-009507513-2012SP022931

PATIENT
  Sex: Female

DRUGS (1)
  1. NASONEX [Suspect]
     Indication: HYPERSENSITIVITY
     Dates: start: 2000

REACTIONS (4)
  - Aphonia [Unknown]
  - Pain [Unknown]
  - Metal poisoning [Unknown]
  - Headache [Unknown]
